FAERS Safety Report 7631953-6 (Version None)
Quarter: 2011Q3

REPORT INFORMATION
  Report Type: 
  Country: None (occurrence: None)
  Receive Date: 20110725
  Receipt Date: 20110516
  Transmission Date: 20111222
  Serious: No
  Sender: FDA-Public Use
  Company Number: US-BRISTOL-MYERS SQUIBB COMPANY-15748163

PATIENT
  Age: 77 Year
  Sex: Male

DRUGS (6)
  1. FOLIC ACID [Concomitant]
  2. LIPITOR [Concomitant]
  3. CARDURA [Concomitant]
  4. DESONIDE [Concomitant]
  5. COUMADIN [Suspect]
     Dosage: 1DF=7.5(UNIT NOT SPECIFIED) ON MONDAY, WEDNESDAY, FRIDAY +5 MG THE REST OF THE DAYS.
     Dates: start: 19850101
  6. ATENOLOL [Concomitant]

REACTIONS (1)
  - INTERNATIONAL NORMALISED RATIO INCREASED [None]
